FAERS Safety Report 5068704-8 (Version None)
Quarter: 2006Q3

REPORT INFORMATION
  Report Type: 
  Country: None (occurrence: None)
  Receive Date: 20060802
  Receipt Date: 20060221
  Transmission Date: 20061208
  Serious: No
  Sender: FDA-Public Use
  Company Number: US-BRISTOL-MYERS SQUIBB COMPANY-13290267

PATIENT
  Sex: Male

DRUGS (10)
  1. COUMADIN [Suspect]
  2. PROTONIX [Concomitant]
  3. PLAVIX [Concomitant]
  4. ACTOS [Concomitant]
  5. DIOVAN [Concomitant]
  6. TOPROL-XL [Concomitant]
  7. GLIPIZIDE [Concomitant]
  8. DIGOXIN [Concomitant]
  9. FLOMAX [Concomitant]
  10. CARDIZEM [Concomitant]
     Dosage: BLOOD PRESSURE REMAINED THE SAME 140/60.

REACTIONS (2)
  - ASTHENIA [None]
  - FATIGUE [None]
